FAERS Safety Report 7291608-7 (Version None)
Quarter: 2011Q1

REPORT INFORMATION
  Report Type: 
  Country: None (occurrence: None)
  Receive Date: 20110214
  Receipt Date: 20110210
  Transmission Date: 20110831
  Serious: Yes (Death)
  Sender: FDA-Public Use
  Company Number: PHHY2011IN10287

PATIENT
  Age: 14 Year
  Sex: Male

DRUGS (1)
  1. ASUNRA [Suspect]
     Dosage: 400 MG

REACTIONS (1)
  - LUNG INFECTION [None]
